FAERS Safety Report 8564041-5 (Version None)
Quarter: 2012Q3

REPORT INFORMATION
  Report Type: 
  Country: None (occurrence: None)
  Receive Date: 20120803
  Receipt Date: 20120726
  Transmission Date: 20120928
  Serious: Yes (Other)
  Sender: FDA-Public Use
  Company Number: IE-AMGEN-IRLSP2012039363

PATIENT
  Age: 67 Year
  Sex: Female
  Weight: 62 kg

DRUGS (5)
  1. DIAZEPAM [Concomitant]
     Dosage: 2 MG, TID
     Route: 048
  2. PROLIA [Suspect]
     Indication: OSTEOPOROSIS
     Dosage: 60 MG/ML, ONE TIME DOSE
     Route: 058
     Dates: start: 20120418, end: 20120418
  3. ASPIRIN [Concomitant]
     Dosage: 75 MG, QD
     Route: 048
  4. PREDNISOLONE [Concomitant]
     Dosage: 7.5 MG, QD
     Route: 048
  5. BUTRANS                            /00444002/ [Concomitant]
     Dosage: 16 MG, QWK
     Route: 062

REACTIONS (1)
  - CELLULITIS ORBITAL [None]
